FAERS Safety Report 10026904 (Version 1)
Quarter: 2014Q1

REPORT INFORMATION
  Report Type: Spontaneous
  Country: GB (occurrence: GB)
  Receive Date: 20140321
  Receipt Date: 20140321
  Transmission Date: 20141002
  Serious: Yes (Other)
  Sender: FDA-Public Use
  Company Number: GB-JNJFOC-20140308892

PATIENT
  Age: 7 Year
  Sex: Male

DRUGS (2)
  1. LYRINEL [Suspect]
     Indication: BLADDER DISORDER
     Route: 048
     Dates: start: 20131215, end: 20140124
  2. MULTIVITAMINS [Concomitant]
     Route: 065

REACTIONS (4)
  - Abnormal behaviour [Recovered/Resolved]
  - Disturbance in attention [Recovered/Resolved]
  - Agitation [Recovered/Resolved]
  - Feeling abnormal [Unknown]
